FAERS Safety Report 5419053-7 (Version None)
Quarter: 2007Q3

REPORT INFORMATION
  Report Type: 
  Country: None (occurrence: None)
  Receive Date: 20070820
  Receipt Date: 20070810
  Transmission Date: 20080115
  Serious: Yes (Other)
  Sender: FDA-Public Use
  Company Number: PHBS2007JP13362

PATIENT

DRUGS (1)
  1. RITALIN [Suspect]
     Dosage: 500 MG, ONCE/SINGLE

REACTIONS (3)
  - AGITATION [None]
  - MALAISE [None]
  - OVERDOSE [None]
